FAERS Safety Report 5928376-4 (Version None)
Quarter: 2008Q4

REPORT INFORMATION
  Report Type: 
  Country: None (occurrence: None)
  Receive Date: 20081023
  Receipt Date: 20081016
  Transmission Date: 20090506
  Serious: No
  Sender: FDA-Public Use
  Company Number: DE-JNJCH-2008024952

PATIENT
  Sex: Female
  Weight: 71 kg

DRUGS (1)
  1. REACTINE DUO [Suspect]
     Indication: DRUG USE FOR UNKNOWN INDICATION
     Dosage: TEXT:UNSPECIFIED/DAILY
     Route: 048

REACTIONS (1)
  - HYPERSENSITIVITY [None]
